FAERS Safety Report 14458493 (Version 1)
Quarter: 2018Q1

REPORT INFORMATION
  Report Type: Spontaneous
  Country: US (occurrence: US)
  Receive Date: 20180130
  Receipt Date: 20180130
  Transmission Date: 20180509
  Serious: Yes (Other)
  Sender: FDA-Public Use
  Company Number: US-DSJP-DSU-2017-142717AA

PATIENT

DRUGS (1)
  1. BENICAR [Suspect]
     Active Substance: OLMESARTAN MEDOXOMIL
     Indication: HYPERTENSION
     Dosage: 20 MG, QD
     Route: 048
     Dates: start: 20021030, end: 20150618

REACTIONS (6)
  - Small intestinal obstruction [Unknown]
  - Oesophageal ulcer [Unknown]
  - Sprue-like enteropathy [Recovering/Resolving]
  - Diverticulum [Unknown]
  - Gastric polyps [Unknown]
  - Gastrooesophageal reflux disease [Unknown]

NARRATIVE: CASE EVENT DATE: 20021118
